FAERS Safety Report 6500033-5 (Version None)
Quarter: 2009Q4

REPORT INFORMATION
  Report Type: 
  Country: None (occurrence: None)
  Receive Date: 20091216
  Receipt Date: 20091211
  Transmission Date: 20100525
  Serious: Yes (Life-Threatening)
  Sender: FDA-Public Use
  Company Number: IT-JNJFOC-20091203610

PATIENT
  Sex: Male

DRUGS (1)
  1. CAELYX [Suspect]
     Indication: DRUG USE FOR UNKNOWN INDICATION
     Route: 042

REACTIONS (3)
  - ACUTE MYOCARDIAL INFARCTION [None]
  - HYPERPYREXIA [None]
  - PNEUMOCYSTIS JIROVECI PNEUMONIA [None]
